FAERS Safety Report 8662058 (Version 2)
Quarter: 2019Q4

REPORT INFORMATION
  Report Type: Spontaneous
  Country: US (occurrence: US)
  Receive Date: 20120712
  Receipt Date: 20191219
  Transmission Date: 20200122
  Serious: Yes (Hospitalization)
  Sender: FDA-Public Use
  Company Number: US-UCBSA-061155

PATIENT
  Age: 27 Year
  Sex: Female

DRUGS (1)
  1. CIMZIA [Suspect]
     Active Substance: CERTOLIZUMAB PEGOL
     Indication: CROHN^S DISEASE
     Dosage: 300 MG, MONTHLY (QM)
     Dates: start: 201202

REACTIONS (2)
  - Crohn^s disease [Not Recovered/Not Resolved]
  - Pelvic infection [Not Recovered/Not Resolved]

NARRATIVE: CASE EVENT DATE: 201206
